FAERS Safety Report 23878175 (Version 4)
Quarter: 2025Q1

REPORT INFORMATION
  Report Type: Spontaneous
  Country: FR (occurrence: FR)
  Receive Date: 20240521
  Receipt Date: 20250206
  Transmission Date: 20250409
  Serious: Yes (Hospitalization, Disabling, Other)
  Sender: UCB
  Company Number: None

PATIENT
  Age: 49 Year
  Sex: Female

DRUGS (34)
  1. KEPPRA [Suspect]
     Active Substance: LEVETIRACETAM
     Indication: Epilepsy
     Dosage: 500 MILLIGRAM, 2X/DAY (BID) (1 TABLET IN THE MORNING AND THE EVENING, FOR 1 MONTH, TO BE RENEWED TWI
     Route: 048
     Dates: start: 20211125
  2. NOMEGESTROL [Suspect]
     Active Substance: NOMEGESTROL
     Indication: Heavy menstrual bleeding
     Route: 048
     Dates: start: 20210624
  3. NOMEGESTROL [Suspect]
     Active Substance: NOMEGESTROL
     Indication: Intermenstrual bleeding
     Route: 048
     Dates: start: 20210210
  4. NOMEGESTROL [Suspect]
     Active Substance: NOMEGESTROL
     Route: 048
     Dates: start: 20201118
  5. NOMEGESTROL [Suspect]
     Active Substance: NOMEGESTROL
     Route: 048
     Dates: start: 20201017
  6. NOMEGESTROL [Suspect]
     Active Substance: NOMEGESTROL
     Route: 048
     Dates: start: 20210522
  7. NOMEGESTROL [Suspect]
     Active Substance: NOMEGESTROL
     Route: 048
     Dates: start: 20210409
  8. NOMEGESTROL [Suspect]
     Active Substance: NOMEGESTROL
     Route: 048
     Dates: start: 20210113
  9. NOMEGESTROL [Suspect]
     Active Substance: NOMEGESTROL
     Route: 048
     Dates: start: 20200925
  10. NOMEGESTROL [Suspect]
     Active Substance: NOMEGESTROL
     Route: 048
     Dates: start: 20201216
  11. NOMEGESTROL [Suspect]
     Active Substance: NOMEGESTROL
     Route: 048
     Dates: start: 20210312
  12. NOMEGESTROL [Suspect]
     Active Substance: NOMEGESTROL
     Route: 048
     Dates: start: 20190318
  13. NOMEGESTROL [Suspect]
     Active Substance: NOMEGESTROL
     Route: 048
     Dates: start: 20190711
  14. NOMEGESTROL [Suspect]
     Active Substance: NOMEGESTROL
     Route: 048
     Dates: start: 20190411
  15. NOMEGESTROL [Suspect]
     Active Substance: NOMEGESTROL
     Route: 048
     Dates: start: 20190516
  16. NOMEGESTROL [Suspect]
     Active Substance: NOMEGESTROL
     Route: 048
     Dates: start: 20190806
  17. NOMEGESTROL [Suspect]
     Active Substance: NOMEGESTROL
     Route: 048
     Dates: start: 20210522
  18. CHLORMADINONE ACETATE [Suspect]
     Active Substance: CHLORMADINONE ACETATE
     Indication: Intermenstrual bleeding
     Route: 048
     Dates: start: 20101101
  19. NOMEGESTROL ACETATE [Suspect]
     Active Substance: NOMEGESTROL ACETATE
     Indication: Intermenstrual bleeding
     Route: 048
     Dates: start: 20121108
  20. NOMEGESTROL ACETATE [Suspect]
     Active Substance: NOMEGESTROL ACETATE
     Indication: Heavy menstrual bleeding
     Route: 048
     Dates: start: 20180215
  21. NOMEGESTROL ACETATE [Suspect]
     Active Substance: NOMEGESTROL ACETATE
     Route: 048
     Dates: start: 20210630
  22. NOMEGESTROL ACETATE [Suspect]
     Active Substance: NOMEGESTROL ACETATE
     Route: 048
     Dates: start: 20120810
  23. NOMEGESTROL ACETATE [Suspect]
     Active Substance: NOMEGESTROL ACETATE
     Route: 048
     Dates: start: 20151221
  24. NOMEGESTROL ACETATE [Suspect]
     Active Substance: NOMEGESTROL ACETATE
     Route: 048
     Dates: start: 20130105
  25. NOMEGESTROL ACETATE [Suspect]
     Active Substance: NOMEGESTROL ACETATE
     Route: 048
     Dates: start: 20160713
  26. NOMEGESTROL ACETATE [Suspect]
     Active Substance: NOMEGESTROL ACETATE
     Route: 048
     Dates: start: 20150603
  27. NOMEGESTROL ACETATE [Suspect]
     Active Substance: NOMEGESTROL ACETATE
     Route: 048
     Dates: start: 20190221
  28. NOMEGESTROL ACETATE [Suspect]
     Active Substance: NOMEGESTROL ACETATE
     Route: 048
     Dates: start: 20141112
  29. NOMEGESTROL ACETATE [Suspect]
     Active Substance: NOMEGESTROL ACETATE
     Route: 048
     Dates: start: 201911
  30. NOMEGESTROL ACETATE [Suspect]
     Active Substance: NOMEGESTROL ACETATE
     Route: 048
     Dates: start: 20191204
  31. NOMEGESTROL ACETATE [Suspect]
     Active Substance: NOMEGESTROL ACETATE
     Route: 048
     Dates: start: 20131204
  32. PROMEGESTONE [Suspect]
     Active Substance: PROMEGESTONE
     Indication: Product used for unknown indication
     Route: 048
     Dates: start: 201911
  33. PROMEGESTONE [Suspect]
     Active Substance: PROMEGESTONE
     Route: 048
     Dates: start: 20190221
  34. PROMEGESTONE [Suspect]
     Active Substance: PROMEGESTONE
     Route: 048
     Dates: start: 20210409

REACTIONS (4)
  - Meningioma benign [Recovered/Resolved with Sequelae]
  - Meningioma surgery [Unknown]
  - Asthenia [Unknown]
  - Feeling abnormal [Unknown]

NARRATIVE: CASE EVENT DATE: 20210906
